FAERS Safety Report 7745444-5 (Version None)
Quarter: 2011Q3

REPORT INFORMATION
  Report Type: 
  Country: None (occurrence: None)
  Receive Date: 20110908
  Receipt Date: 20110831
  Transmission Date: 20111222
  Serious: Yes (Hospitalization, Other)
  Sender: FDA-Public Use
  Company Number: CL-341-2011

PATIENT
  Age: 42 Year
  Sex: Male

DRUGS (1)
  1. METRONIDAZOLE [Suspect]
     Dosage: 400MG ONCE ORAL
     Route: 048
     Dates: start: 20110729, end: 20110729

REACTIONS (8)
  - VOMITING [None]
  - ANAPHYLACTIC SHOCK [None]
  - HYPOTENSION [None]
  - THROAT TIGHTNESS [None]
  - RESUSCITATION [None]
  - DRUG HYPERSENSITIVITY [None]
  - RENAL FAILURE [None]
  - DIARRHOEA [None]
